FAERS Safety Report 8935812 (Version 2)
Quarter: 2012Q4

REPORT INFORMATION
  Report Type: 
  Country: TR (occurrence: TR)
  Receive Date: 20121130
  Receipt Date: 20121214
  Transmission Date: 20130627
  Serious: Yes (Death, Hospitalization)
  Sender: FDA-Public Use
  Company Number: TR-SP-2012-11174

PATIENT
  Age: 60 Year
  Sex: Male

DRUGS (2)
  1. RABIES VACCINE [Suspect]
     Indication: IMMUNISATION
     Route: 065
  2. IMMUNOGLOBULIN HUMAN ANTIRABIES [Suspect]
     Indication: IMMUNISATION
     Dosage: 20 IU/kG
     Route: 065

REACTIONS (8)
  - Rabies [Fatal]
  - Coma [Fatal]
  - Altered state of consciousness [Fatal]
  - Respiratory distress [Fatal]
  - Cardiac arrest [Fatal]
  - Salivary hypersecretion [Fatal]
  - Pyrexia [Fatal]
  - Vaccination failure [Fatal]
